FAERS Safety Report 24251067 (Version 1)
Quarter: 2024Q3

REPORT INFORMATION
  Report Type: Spontaneous
  Country: US (occurrence: US)
  Receive Date: 20240826
  Receipt Date: 20240826
  Transmission Date: 20241017
  Serious: Yes (Other)
  Sender: BRISTOL MYERS SQUIBB
  Company Number: US-BRISTOL-MYERS SQUIBB COMPANY-2024-131086

PATIENT
  Age: 78 Year
  Sex: Female

DRUGS (1)
  1. LENALIDOMIDE [Suspect]
     Active Substance: LENALIDOMIDE
     Indication: Plasma cell myeloma
     Dosage: DAILY X 14 DAYS, EVERY 21 DAYS
     Route: 048
     Dates: start: 20240808, end: 20240811

REACTIONS (7)
  - Fatigue [Recovered/Resolved]
  - Hypersomnia [Recovered/Resolved]
  - Chills [Recovered/Resolved]
  - Dyskinesia [Recovered/Resolved]
  - Cerebrovascular accident [Recovered/Resolved]
  - Facial paralysis [Recovered/Resolved]
  - Off label use [Unknown]

NARRATIVE: CASE EVENT DATE: 20240811
